FAERS Safety Report 20984534 (Version 1)
Quarter: 2022Q2

REPORT INFORMATION
  Report Type: Spontaneous
  Country: US (occurrence: None)
  Receive Date: 20220621
  Receipt Date: 20220621
  Transmission Date: 20220721
  Serious: No
  Sender: FDA-Public Use
  Company Number: US-ROCHE-2839624

PATIENT
  Sex: Female

DRUGS (2)
  1. CAPECITABINE [Suspect]
     Active Substance: CAPECITABINE
     Indication: Product used for unknown indication
     Route: 065
  2. TUKYSA [Suspect]
     Active Substance: TUCATINIB
     Indication: Breast cancer female
     Route: 065

REACTIONS (11)
  - Diarrhoea [Unknown]
  - Asthenia [Unknown]
  - Feeling hot [Unknown]
  - Urinary tract infection [Unknown]
  - Neuropathy peripheral [Unknown]
  - Hypersomnia [Unknown]
  - Abdominal pain [Unknown]
  - Liver scan abnormal [Unknown]
  - Palmar-plantar erythrodysaesthesia syndrome [Unknown]
  - Dry skin [Unknown]
  - Localised infection [Unknown]
